FAERS Safety Report 7866211-8 (Version None)
Quarter: 2011Q4

REPORT INFORMATION
  Report Type: 
  Country: None (occurrence: None)
  Receive Date: 20111028
  Receipt Date: 20110512
  Transmission Date: 20120403
  Serious: No
  Sender: FDA-Public Use
  Company Number: US-GLAXOSMITHKLINE-A0927144A

PATIENT
  Age: 78 Year
  Sex: Male

DRUGS (6)
  1. ANTI-CHOLESTEROL MEDICATION [Concomitant]
  2. BLOOD PRESSURE MEDICATION [Concomitant]
  3. SYNTHROID [Concomitant]
  4. UNKNOWN MEDICATION [Concomitant]
  5. ADVAIR DISKUS 100/50 [Suspect]
     Indication: PROPHYLAXIS
     Dosage: 2PUFF TWICE PER DAY
     Route: 055
     Dates: start: 20040101
  6. UNKNOWN MEDICATION [Concomitant]
     Indication: HIATUS HERNIA

REACTIONS (1)
  - DYSPHONIA [None]
